FAERS Safety Report 20501900 (Version 1)
Quarter: 2022Q1

REPORT INFORMATION
  Report Type: Spontaneous
  Country: CA (occurrence: CA)
  Receive Date: 20220222
  Receipt Date: 20220222
  Transmission Date: 20220423
  Serious: Yes (Other)
  Sender: FDA-Public Use
  Company Number: CA-MYLANLABS-2022M1012815

PATIENT
  Age: 56 Year
  Sex: Female

DRUGS (1)
  1. EPIVAL [Suspect]
     Active Substance: DIVALPROEX SODIUM
     Indication: Epilepsy
     Dosage: 250 MILLIGRAM, TID
     Dates: start: 202110

REACTIONS (4)
  - Muscle spasms [Unknown]
  - Hyperchlorhydria [Unknown]
  - Alopecia [Unknown]
  - Weight increased [Unknown]
